FAERS Safety Report 18059294 (Version 1)
Quarter: 2020Q3

REPORT INFORMATION
  Report Type: Spontaneous
  Country: US (occurrence: US)
  Receive Date: 20200723
  Receipt Date: 20200723
  Transmission Date: 20201103
  Serious: Yes (Other)
  Sender: FDA-Public Use
  Company Number: None

PATIENT
  Age: 43 Year
  Sex: Female
  Weight: 88.65 kg

DRUGS (6)
  1. INHALER [Concomitant]
     Active Substance: UNSPECIFIED INGREDIENT
  2. WORMWOOD [Concomitant]
     Active Substance: WORMWOOD
  3. CATS CLAW [Concomitant]
  4. GERM?X [Suspect]
     Active Substance: ALCOHOL
     Indication: INFECTION PROPHYLAXIS
     Dates: start: 20200618, end: 20200618
  5. BURDICK WOOD [Concomitant]
  6. MULTIVITAMINS WITH IRON [Concomitant]
     Active Substance: IRON\VITAMINS

REACTIONS (1)
  - Rash [None]

NARRATIVE: CASE EVENT DATE: 20200618
